FAERS Safety Report 15686637 (Version 1)
Quarter: 2018Q4

REPORT INFORMATION
  Report Type: Spontaneous
  Country: DK (occurrence: DK)
  Receive Date: 20181204
  Receipt Date: 20181204
  Transmission Date: 20190205
  Serious: Yes (Life-Threatening, Hospitalization)
  Sender: FDA-Public Use
  Company Number: PHHY2018DK173646

PATIENT
  Age: 78 Year
  Sex: Male

DRUGS (15)
  1. METOPROLOL. [Concomitant]
     Active Substance: METOPROLOL
     Indication: ANGINA PECTORIS
     Dosage: 50 MG, QD, STYRKE: 25 MG.
     Route: 048
     Dates: start: 20180305
  2. PANTOPRAZOLE SODIUM SESQUIHYDRATE [Concomitant]
     Active Substance: PANTOPRAZOLE SODIUM
     Indication: GASTRIC ULCER
     Dosage: 40 MG, QD, STYRKE: 40 MG.
     Route: 048
     Dates: start: 20180831
  3. DIGOXIN. [Concomitant]
     Active Substance: DIGOXIN
     Indication: ARRHYTHMIA
     Dosage: STYRKE: 62,5 MIKROGRAM
     Route: 048
     Dates: start: 20180814
  4. CIPROFLOXACIN. [Concomitant]
     Active Substance: CIPROFLOXACIN
     Indication: SKIN INFECTION
     Dosage: 1000 MG, QD, STYRKE: 500MG
     Route: 048
     Dates: start: 20181028, end: 20181031
  5. PANCILLIN [Concomitant]
     Active Substance: PENICILLIN V
     Dosage: 6000000 IU, QD, STYRKE: 1 MILL. IE.
     Route: 048
     Dates: start: 20181008, end: 20181013
  6. POTASSIUM CHLORIDE. [Concomitant]
     Active Substance: POTASSIUM CHLORIDE
     Indication: MINERAL SUPPLEMENTATION
     Dosage: 1500 MG, QD, STYRKE: 750 MG.
     Route: 048
     Dates: start: 20180823
  7. MEKINIST [Suspect]
     Active Substance: TRAMETINIB DIMETHYL SULFOXIDE
     Indication: MALIGNANT MELANOMA
     Dosage: 1 MG, STYRKE: 100 MG.
     Route: 048
     Dates: start: 20180618
  8. DOMPERIDONE [Concomitant]
     Active Substance: DOMPERIDONE
     Indication: NAUSEA
     Dosage: 10 G, STYRKE: 10 MG.DOSIS: 1 TABLET VED BEHOV, MAX 3 GANGE DAGLIGT.
     Route: 048
  9. CALCIUM + VITAMIN D [Concomitant]
     Active Substance: CALCIUM\VITAMIN D
     Indication: SUPPLEMENTATION THERAPY
     Dosage: STYRKE: 400MG + 19 MIKROGRAM
     Route: 048
     Dates: start: 20180122
  10. PARACETAMOL [Concomitant]
     Active Substance: ACETAMINOPHEN
     Indication: PAIN
     Dosage: 4 G, QD
     Route: 048
     Dates: start: 20180827
  11. PANCILLIN [Concomitant]
     Active Substance: PENICILLIN V
     Indication: SKIN INFECTION
     Dosage: 4000000 IU, QD, STYRKE: 1 MILL. IE.
     Route: 048
     Dates: start: 20180801, end: 20180806
  12. TAFINLAR [Suspect]
     Active Substance: DABRAFENIB MESYLATE
     Indication: MALIGNANT MELANOMA
     Dosage: 150 MG, QD, STYRKE: 75 MG.SIDSTE KENDTE BEHANDLING ER D. 19OKT2018, UVIST OM DET ER GIVET EFTER.
     Route: 048
     Dates: start: 20180618
  13. DABIGATRAN ETEXILATE MESILATE [Concomitant]
     Active Substance: DABIGATRAN ETEXILATE MESYLATE
     Indication: THROMBOSIS PROPHYLAXIS
     Dosage: 220 MG, QD, STYRKE: 110 MG.
     Route: 048
     Dates: start: 20180618
  14. CIPROFLOXACIN. [Concomitant]
     Active Substance: CIPROFLOXACIN
     Indication: SEPSIS
     Dosage: 1000 MG, QD, STYRKE: 500MG
     Route: 048
     Dates: start: 20180827, end: 20180831
  15. ALLOPURINOL. [Concomitant]
     Active Substance: ALLOPURINOL
     Indication: GOUT
     Dosage: 100 MG, QD, STYRKE: 100 MG.
     Route: 048
     Dates: start: 20181029

REACTIONS (3)
  - Cerebral disorder [Not Recovered/Not Resolved]
  - Altered state of consciousness [Not Recovered/Not Resolved]
  - Cardiac arrest [Recovered/Resolved with Sequelae]

NARRATIVE: CASE EVENT DATE: 201811
